FAERS Safety Report 7644802-7 (Version None)
Quarter: 2011Q3

REPORT INFORMATION
  Report Type: 
  Country: None (occurrence: None)
  Receive Date: 20110725
  Receipt Date: 20110707
  Transmission Date: 20111222
  Serious: Yes (Other)
  Sender: FDA-Public Use
  Company Number: 2011MA008780

PATIENT
  Sex: Male

DRUGS (2)
  1. PENICILLIN [Concomitant]
  2. TRAMADOL HYDROCHLORIDE [Suspect]

REACTIONS (1)
  - PSYCHOTIC DISORDER [None]
